FAERS Safety Report 4519904-4 (Version None)
Quarter: 2004Q4

REPORT INFORMATION
  Report Type: 
  Country: None (occurrence: None)
  Receive Date: 20041202
  Receipt Date: 20041202
  Transmission Date: 20050328
  Serious: Yes (Life-Threatening)
  Sender: FDA-Public Use
  Company Number: None

PATIENT
  Age: 71 Year
  Sex: Male
  Weight: 109.6 kg

DRUGS (2)
  1. INDOMETHACIN [Suspect]
     Indication: GOUT
     Dosage: 75MG DAILY ORAL
     Route: 048
  2. ROFECOXIB [Suspect]
     Indication: ARTHRITIS
     Dosage: 25MG  DAILY  ORAL
     Route: 048

REACTIONS (2)
  - EPISTAXIS [None]
  - GASTROINTESTINAL HAEMORRHAGE [None]
